FAERS Safety Report 6436328-3 (Version None)
Quarter: 2009Q4

REPORT INFORMATION
  Report Type: 
  Country: None (occurrence: None)
  Receive Date: 20091111
  Receipt Date: 20091106
  Transmission Date: 20100525
  Serious: Yes (Other)
  Sender: FDA-Public Use
  Company Number: B0603131A

PATIENT
  Age: 35 Year
  Sex: Female

DRUGS (2)
  1. TYKERB [Suspect]
     Indication: METASTASIS
     Route: 065
     Dates: start: 20090316
  2. CAPECITABINE [Concomitant]
     Route: 065
     Dates: start: 20090316

REACTIONS (2)
  - LYMPHADENOPATHY [None]
  - METASTASES TO LIVER [None]
